FAERS Safety Report 10153077 (Version 1)
Quarter: 2014Q2

REPORT INFORMATION
  Report Type: Spontaneous
  Country: US (occurrence: US)
  Receive Date: 20140505
  Receipt Date: 20140505
  Transmission Date: 20141212
  Serious: Yes (Hospitalization)
  Sender: FDA-Public Use
  Company Number: US-BAYER-2014-064824

PATIENT
  Age: 34 Year
  Sex: Female
  Weight: 107 kg

DRUGS (14)
  1. GIANVI [Suspect]
  2. YAZ [Suspect]
     Dosage: UNK
     Dates: start: 201207, end: 20121028
  3. PHENTERMINE [Concomitant]
     Dosage: 37.5 MG, UNK
     Route: 048
     Dates: start: 20120911
  4. PHENTERMINE [Concomitant]
     Dosage: 37.5 MG, 1 DAILY
     Route: 048
     Dates: start: 20121014
  5. PHENTERMINE [Concomitant]
     Dosage: 37.5 MG, 1 DAILY
     Route: 048
     Dates: start: 20121110
  6. MULTIVITAMINS [Concomitant]
     Dosage: 1 DAILY
     Route: 048
     Dates: start: 20121110
  7. HYDROCODONE/ACETAMINOPHEN [Concomitant]
     Indication: PAIN
     Dosage: UNK UNK, PRN
     Dates: start: 20120913
  8. OMEPRAZOLE [Concomitant]
     Dosage: 20 MG, UNK1 CAPSULE
     Route: 048
  9. OXYMETAZOLINE [Concomitant]
  10. CLINDAMYCIN [Concomitant]
     Indication: TOOTH INFECTION
  11. AZITHROMYCIN [Concomitant]
     Indication: TOOTH INFECTION
  12. METRONIDAZOLE [Concomitant]
     Dosage: 500 MG, UNK
     Dates: start: 20120822
  13. CLEOCIN [Concomitant]
     Dosage: 100 MG, UNK
     Dates: start: 20120823
  14. CHLORHEXIDINE [Concomitant]
     Dosage: 0.12 %, UNK
     Dates: start: 20120927

REACTIONS (2)
  - Pulmonary embolism [Recovered/Resolved]
  - Deep vein thrombosis [None]
